FAERS Safety Report 5937332-1 (Version None)
Quarter: 2008Q4

REPORT INFORMATION
  Report Type: 
  Country: None (occurrence: None)
  Receive Date: 20081031
  Receipt Date: 20081023
  Transmission Date: 20090506
  Serious: Yes (Other)
  Sender: FDA-Public Use
  Company Number: US-AVENTIS-200817197US

PATIENT
  Age: 85 Year
  Sex: Male

DRUGS (7)
  1. LASIX [Suspect]
     Dosage: DOSE: UNK
  2. POLYMYCIN B SULFATE [Suspect]
     Route: 042
  3. AZITHROMYCIN [Concomitant]
     Dosage: DOSE: UNK
  4. COTRIMOXAZOLE [Concomitant]
     Dosage: DOSE: UNK
     Route: 042
  5. VANCOMYCIN HYDROCHLORIDE [Concomitant]
     Dosage: DOSE: UNK
  6. LOSARTAN POTASSIUM [Concomitant]
     Dosage: DOSE: UNK
  7. HYDROCHLOROTHIAZIDE [Concomitant]
     Dosage: DOSE: UNK

REACTIONS (2)
  - DRUG INTERACTION [None]
  - RENAL FAILURE [None]
